FAERS Safety Report 18201890 (Version 1)
Quarter: 2020Q3

REPORT INFORMATION
  Report Type: Spontaneous
  Country: US (occurrence: US)
  Receive Date: 20200826
  Receipt Date: 20200826
  Transmission Date: 20201103
  Serious: No
  Sender: FDA-Public Use
  Company Number: None

PATIENT
  Age: 4 Year
  Sex: Male

DRUGS (1)
  1. TACROLIMUS CAP 0.5MG [Suspect]
     Active Substance: TACROLIMUS
     Route: 048
     Dates: start: 201612

REACTIONS (4)
  - Liver function test increased [None]
  - Drug level abnormal [None]
  - Tremor [None]
  - Insomnia [None]

NARRATIVE: CASE EVENT DATE: 20200325
